FAERS Safety Report 5341653-3 (Version None)
Quarter: 2007Q2

REPORT INFORMATION
  Report Type: 
  Country: None (occurrence: None)
  Receive Date: 20070530
  Receipt Date: 20070515
  Transmission Date: 20071010
  Serious: Yes (Other)
  Sender: FDA-Public Use
  Company Number: A-CH2007-15845

PATIENT
  Sex: Female

DRUGS (6)
  1. TRACLEER [Suspect]
     Indication: PULMONARY HYPERTENSION
     Dosage: SEE IMAGE
     Route: 048
     Dates: start: 20051201, end: 20060101
  2. TRACLEER [Suspect]
     Indication: PULMONARY HYPERTENSION
     Dosage: SEE IMAGE
     Route: 048
     Dates: start: 20060101, end: 20060301
  3. TRACLEER [Suspect]
     Indication: PULMONARY HYPERTENSION
     Dosage: SEE IMAGE
     Route: 048
     Dates: end: 20060506
  4. REMODULIN (TREPROSTINIL) [Suspect]
  5. LEVOTHYROXINE SODIUM [Concomitant]
  6. ILOMEDIN [Concomitant]

REACTIONS (7)
  - ANAEMIA [None]
  - BLOOD THYROID STIMULATING HORMONE INCREASED [None]
  - HEPATIC ENZYME INCREASED [None]
  - INADEQUATE ANALGESIA [None]
  - INJECTION SITE PAIN [None]
  - PALPITATIONS [None]
  - THROMBOCYTOPENIA [None]
